FAERS Safety Report 6523039-9 (Version None)
Quarter: 2009Q4

REPORT INFORMATION
  Report Type: 
  Country: None (occurrence: None)
  Receive Date: 20091230
  Receipt Date: 20091224
  Transmission Date: 20100525
  Serious: Yes (Hospitalization, Disabling, Other)
  Sender: FDA-Public Use
  Company Number: IN-MERCK-0912USA03414

PATIENT
  Age: 70 Year
  Sex: Male
  Weight: 60 kg

DRUGS (7)
  1. JANUVIA [Suspect]
     Indication: HYPERGLYCAEMIA
     Route: 048
     Dates: start: 20090219, end: 20091222
  2. GLIMEPIRIDE [Concomitant]
     Route: 065
  3. VALSARTAN [Concomitant]
     Route: 065
  4. PIOGLITAZONE HYDROCHLORIDE [Concomitant]
     Route: 065
  5. METFORMIN [Concomitant]
     Route: 065
  6. ASPIRIN [Concomitant]
     Route: 065
  7. STATIN (UNSPECIFIED) [Concomitant]
     Route: 065

REACTIONS (6)
  - APPENDIX DISORDER [None]
  - ASCITES [None]
  - CONSTIPATION [None]
  - DECREASED APPETITE [None]
  - INTESTINAL OBSTRUCTION [None]
  - NASOPHARYNGITIS [None]
